FAERS Safety Report 12428258 (Version 1)
Quarter: 2016Q2

REPORT INFORMATION
  Report Type: Spontaneous
  Country: ES (occurrence: ES)
  Receive Date: 20160602
  Receipt Date: 20160602
  Transmission Date: 20160815
  Serious: Yes (Other)
  Sender: FDA-Public Use
  Company Number: ES-WATSON-2016-11414

PATIENT
  Age: 51 Year
  Sex: Female

DRUGS (4)
  1. PREDNISONE (UNKNOWN) [Suspect]
     Active Substance: PREDNISONE
     Indication: GLOMERULONEPHRITIS
     Dosage: 10 MG, DAILY
     Route: 065
  2. MYCOPHENOLATE MOFETIL (UNKNOWN) [Suspect]
     Active Substance: MYCOPHENOLATE MOFETIL
     Indication: GLOMERULONEPHRITIS PROLIFERATIVE
     Dosage: 1 G, BID
     Route: 065
  3. MYCOPHENOLATE MOFETIL (UNKNOWN) [Suspect]
     Active Substance: MYCOPHENOLATE MOFETIL
     Indication: GLOMERULONEPHRITIS
  4. PREDNISONE (UNKNOWN) [Suspect]
     Active Substance: PREDNISONE
     Indication: GLOMERULONEPHRITIS PROLIFERATIVE
     Dosage: 30 MG, DAILY
     Route: 065

REACTIONS (1)
  - Mucocutaneous leishmaniasis [Recovered/Resolved]
